FAERS Safety Report 23547460 (Version 1)
Quarter: 2024Q1

REPORT INFORMATION
  Report Type: Spontaneous
  Country: BR (occurrence: BR)
  Receive Date: 20240221
  Receipt Date: 20240221
  Transmission Date: 20240410
  Serious: Yes (Other)
  Sender: FDA-Public Use
  Company Number: BR-002147023-NVSC2023BR082739

PATIENT
  Sex: Female

DRUGS (4)
  1. KISQALI [Suspect]
     Active Substance: RIBOCICLIB
     Indication: Breast cancer
     Dosage: UNK
     Route: 065
  2. KISQALI [Suspect]
     Active Substance: RIBOCICLIB
     Dosage: UNK
     Route: 065
     Dates: start: 20230809
  3. ZOMETA [Suspect]
     Active Substance: ZOLEDRONIC ACID
     Indication: Product used for unknown indication
     Dosage: UNK (EVERY 3 MONTHS)
     Route: 065
  4. LETROZOLE [Concomitant]
     Active Substance: LETROZOLE
     Indication: Bone disorder
     Dosage: UNK
     Route: 065

REACTIONS (16)
  - Erysipelas [Recovered/Resolved with Sequelae]
  - Thrombosis [Unknown]
  - Skin exfoliation [Recovering/Resolving]
  - Skin discolouration [Not Recovered/Not Resolved]
  - Vitamin D decreased [Unknown]
  - Arthritis [Unknown]
  - Decreased immune responsiveness [Unknown]
  - Osteoarthritis [Unknown]
  - Vitreous floaters [Recovering/Resolving]
  - Peripheral swelling [Not Recovered/Not Resolved]
  - Dry skin [Not Recovered/Not Resolved]
  - Erythema [Not Recovered/Not Resolved]
  - Arthralgia [Not Recovered/Not Resolved]
  - Product availability issue [Unknown]
  - Solar lentigo [Recovering/Resolving]
  - Viral infection [Recovered/Resolved]
